FAERS Safety Report 8173516-2 (Version None)
Quarter: 2012Q1

REPORT INFORMATION
  Report Type: 
  Country: None (occurrence: None)
  Receive Date: 20120223
  Receipt Date: 20120215
  Transmission Date: 20120608
  Serious: Yes (Death)
  Sender: FDA-Public Use
  Company Number: JP-REGULIS-0030

PATIENT
  Age: 28 Year
  Sex: Female

DRUGS (6)
  1. FOSCAVIR [Suspect]
     Indication: ENCEPHALITIS CYTOMEGALOVIRUS
     Dosage: SSEE IMAGE
     Dates: start: 20110420
  2. FOSCAVIR [Suspect]
     Indication: ENCEPHALITIS CYTOMEGALOVIRUS
     Dosage: SSEE IMAGE
     Dates: start: 20110306
  3. FOSCAVIR [Suspect]
     Indication: ENCEPHALITIS CYTOMEGALOVIRUS
     Dosage: 90, MG/KG MILLIGRAM(S)/KILOGRAM, 1, 12, HOURS
     Dates: start: 20110306
  4. GANCICLOVIR [Suspect]
     Indication: ENCEPHALITIS CYTOMEGALOVIRUS
     Dosage: SEE IMAGE
     Dates: start: 20110306
  5. GANCICLOVIR [Suspect]
     Indication: ENCEPHALITIS CYTOMEGALOVIRUS
     Dosage: SEE IMAGE
     Dates: start: 20110518
  6. GANCICLOVIR [Suspect]
     Dosage: 2.5, MG/KG MILLIGRAM(S)/KILOGRAM, 1, 12, HOURS
     Dates: start: 20110306

REACTIONS (2)
  - ENCEPHALITIS CYTOMEGALOVIRUS [None]
  - PATHOGEN RESISTANCE [None]
